FAERS Safety Report 11159839 (Version 2)
Quarter: 2015Q4

REPORT INFORMATION
  Report Type: Spontaneous
  Country: BR (occurrence: BR)
  Receive Date: 20150603
  Receipt Date: 20151104
  Transmission Date: 20160304
  Serious: Yes (Other)
  Sender: FDA-Public Use
  Company Number: BR-ELI_LILLY_AND_COMPANY-BR201505008426

PATIENT
  Age: 28 Year
  Sex: Female
  Weight: 110 kg

DRUGS (5)
  1. HUMULIN N [Suspect]
     Active Substance: INSULIN HUMAN
     Indication: GESTATIONAL DIABETES
     Dosage: 14 IU, EACH MORNING
     Route: 058
     Dates: start: 20150501
  2. HUMULIN N [Suspect]
     Active Substance: INSULIN HUMAN
     Dosage: 22 IU, EACH EVENING
     Route: 058
     Dates: start: 20150501
  3. HUMULIN R [Suspect]
     Active Substance: INSULIN HUMAN
     Indication: GESTATIONAL DIABETES
     Dosage: 31 IU, EACH MORNING
     Route: 058
     Dates: start: 20150501
  4. HUMULIN R [Suspect]
     Active Substance: INSULIN HUMAN
     Dosage: 26 IU, EACH EVENING
     Route: 058
     Dates: start: 20150501
  5. HUMULIN R [Suspect]
     Active Substance: INSULIN HUMAN
     Dosage: 26 IU, OTHER
     Route: 058
     Dates: start: 20150501

REACTIONS (6)
  - Incorrect dose administered [Unknown]
  - Hypoglycaemia [Unknown]
  - Exposure during pregnancy [Recovered/Resolved]
  - Drug dose omission [Unknown]
  - Blood glucose increased [Unknown]
  - Diabetes mellitus inadequate control [Unknown]

NARRATIVE: CASE EVENT DATE: 20150521
